FAERS Safety Report 5376262-3 (Version None)
Quarter: 2007Q3

REPORT INFORMATION
  Report Type: 
  Country: None (occurrence: None)
  Receive Date: 20070702
  Receipt Date: 20070622
  Transmission Date: 20080115
  Serious: Yes (Other)
  Sender: FDA-Public Use
  Company Number: BE-ROCHE-503812

PATIENT
  Age: 65 Year
  Sex: Male

DRUGS (1)
  1. XELODA [Suspect]
     Indication: COLON CANCER
     Dosage: DOSING REGIMEN: BID 14 DAYS.
     Route: 048
     Dates: start: 20070101, end: 20070101

REACTIONS (1)
  - ULCERATIVE KERATITIS [None]
